FAERS Safety Report 6470032-0 (Version None)
Quarter: 2009Q4

REPORT INFORMATION
  Report Type: 
  Country: None (occurrence: None)
  Receive Date: 20091203
  Receipt Date: 20071016
  Transmission Date: 20100525
  Serious: Yes (Hospitalization)
  Sender: FDA-Public Use
  Company Number: US-ELI_LILLY_AND_COMPANY-US200710004228

PATIENT
  Age: 34 Year
  Sex: Female

DRUGS (6)
  1. BYETTA [Suspect]
     Indication: TYPE 2 DIABETES MELLITUS
     Dosage: 5 UG, 2/D
     Route: 058
     Dates: start: 20050101, end: 20050101
  2. BYETTA [Suspect]
     Dosage: 10 UG, 2/D
     Route: 058
     Dates: start: 20050101
  3. METFORMIN HCL [Concomitant]
     Indication: TYPE 2 DIABETES MELLITUS
     Dosage: 1000 MG, 2/D
     Route: 048
     Dates: start: 20050101
  4. TRICOR [Concomitant]
     Indication: BLOOD CHOLESTEROL
     Dosage: 146 MG, DAILY (1/D)
     Route: 048
     Dates: end: 20071001
  5. FISH OIL [Concomitant]
     Indication: BLOOD CHOLESTEROL
     Dosage: 1 D/F, 2/D
     Route: 048
     Dates: end: 20071001
  6. ANTIHYPERTENSIVES [Concomitant]
     Indication: HYPERTENSION

REACTIONS (7)
  - ABDOMINAL PAIN [None]
  - ABDOMINAL PAIN UPPER [None]
  - ALOPECIA [None]
  - BLOOD TRIGLYCERIDES INCREASED [None]
  - PANCREATITIS [None]
  - PANCREATITIS ACUTE [None]
  - VOMITING [None]
